FAERS Safety Report 5762197-0 (Version None)
Quarter: 2008Q2

REPORT INFORMATION
  Report Type: 
  Country: None (occurrence: None)
  Receive Date: 20080609
  Receipt Date: 20080604
  Transmission Date: 20081010
  Serious: Yes (Death)
  Sender: FDA-Public Use
  Company Number: BR-BRISTOL-MYERS SQUIBB COMPANY-14218002

PATIENT

DRUGS (4)
  1. AMPHOTERICIN B [Suspect]
     Indication: CRYPTOCOCCOSIS
  2. FLUCONAZOLE [Suspect]
     Indication: CRYPTOCOCCOSIS
  3. FLUCYTOSINE [Suspect]
     Indication: CRYPTOCOCCOSIS
  4. ITRACONAZOLE [Suspect]
     Indication: CRYPTOCOCCOSIS

REACTIONS (1)
  - DEATH [None]
